FAERS Safety Report 5753572-9 (Version None)
Quarter: 2008Q2

REPORT INFORMATION
  Report Type: 
  Country: None (occurrence: None)
  Receive Date: 20080530
  Receipt Date: 20080522
  Transmission Date: 20081010
  Serious: Yes (Hospitalization)
  Sender: FDA-Public Use
  Company Number: JP-AVENTIS-200811598JP

PATIENT
  Age: 42 Year
  Sex: Female
  Weight: 50.3 kg

DRUGS (2)
  1. ALLEGRA [Suspect]
     Indication: URTICARIA
     Dates: start: 20080515, end: 20080515
  2. CELESTAMINE                        /00008501/ [Concomitant]
     Dosage: DOSE: 2 TABLETS

REACTIONS (2)
  - BLOOD PRESSURE DECREASED [None]
  - LOSS OF CONSCIOUSNESS [None]
